FAERS Safety Report 18155780 (Version 1)
Quarter: 2020Q3

REPORT INFORMATION
  Report Type: Report from Study
  Country: US (occurrence: US)
  Receive Date: 20200817
  Receipt Date: 20200817
  Transmission Date: 20201103
  Serious: Yes (Hospitalization)
  Sender: FDA-Public Use
  Company Number: US-ALNYLAM PHARMACEUTICALS, INC.-ALN-2020-001391

PATIENT

DRUGS (7)
  1. HYDROCODONE HYDROCHLORIDE [Concomitant]
     Active Substance: HYDROCODONE HYDROCHLORIDE
     Indication: PROPHYLAXIS
  2. CRESTOR [Concomitant]
     Active Substance: ROSUVASTATIN CALCIUM
     Indication: PRODUCT USED FOR UNKNOWN INDICATION
  3. LORATADINE. [Concomitant]
     Active Substance: LORATADINE
     Indication: PROPHYLAXIS
  4. SINGULAIR [Concomitant]
     Active Substance: MONTELUKAST SODIUM
     Indication: PRODUCT USED FOR UNKNOWN INDICATION
  5. ONPATTRO [Suspect]
     Active Substance: PATISIRAN SODIUM
     Indication: HEREDITARY NEUROPATHIC AMYLOIDOSIS
     Dosage: 25.83 MILLIGRAM, Q3W
     Route: 042
     Dates: start: 20200522
  6. HYDROCODONE HYDROCHLORIDE [Concomitant]
     Active Substance: HYDROCODONE HYDROCHLORIDE
     Indication: PAIN
  7. FLONASE [Concomitant]
     Active Substance: FLUTICASONE PROPIONATE
     Indication: PRODUCT USED FOR UNKNOWN INDICATION

REACTIONS (3)
  - Abscess drainage [Unknown]
  - Abscess limb [Unknown]
  - Abscess management [Unknown]
